FAERS Safety Report 21400168 (Version 2)
Quarter: 2022Q4

REPORT INFORMATION
  Report Type: Report from Study
  Country: US (occurrence: US)
  Receive Date: 20221002
  Receipt Date: 20221019
  Transmission Date: 20230113
  Serious: Yes (Hospitalization)
  Sender: FDA-Public Use
  Company Number: US-BIOGEN-2022BI01158131

PATIENT
  Age: 72 Year
  Sex: Female

DRUGS (28)
  1. PLEGRIDY [Suspect]
     Active Substance: PEGINTERFERON BETA-1A
     Indication: Multiple sclerosis
     Route: 050
     Dates: start: 20220830
  2. PLEGRIDY [Suspect]
     Active Substance: PEGINTERFERON BETA-1A
     Route: 050
     Dates: start: 20220913
  3. DEVICE\INSULIN NOS [Concomitant]
     Active Substance: DEVICE\INSULIN NOS
     Indication: Product used for unknown indication
     Dosage: 45 UNITS / BY MOUTH
  4. XYZAL ALLERGY [Concomitant]
     Indication: Product used for unknown indication
     Dosage: XYZAL ALLERGY 24 HR 5 MG ORAL EVERY MORNING
     Route: 050
  5. ASPIRIN [Concomitant]
     Active Substance: ASPIRIN
     Indication: Product used for unknown indication
     Dosage: ASPIRIN 81 MG CHEWABLE TAB ORAL QAM
     Route: 050
  6. FARXIGA [Concomitant]
     Active Substance: DAPAGLIFLOZIN PROPANEDIOL
     Indication: Product used for unknown indication
     Dosage: EVERY MORNING
     Route: 050
  7. METFORMIN HYDROCHLORIDE [Concomitant]
     Active Substance: METFORMIN HYDROCHLORIDE
     Indication: Product used for unknown indication
     Route: 050
  8. EZETIMIBE\SIMVASTATIN [Concomitant]
     Active Substance: EZETIMIBE\SIMVASTATIN
     Indication: Product used for unknown indication
     Dosage: 10MG-40MG 1 EACH EVERY MORNING
     Route: 050
  9. ROPINIROLE HYDROCHLORIDE [Concomitant]
     Active Substance: ROPINIROLE HYDROCHLORIDE
     Indication: Product used for unknown indication
     Dosage: ROPINIROLE HCL 0.5 MG TAB 0.25 MG ORAL QHS
     Route: 050
  10. GABAPENTIN [Concomitant]
     Active Substance: GABAPENTIN
     Indication: Product used for unknown indication
     Route: 050
  11. BACLOFEN [Concomitant]
     Active Substance: BACLOFEN
     Indication: Product used for unknown indication
     Dosage: BACLOFEN 20 MG ORAL TABLET 40 MG ORAL EVERY EVENING AT BEDTIME
     Route: 050
  12. VERAPAMIL HCL [Concomitant]
     Active Substance: VERAPAMIL HYDROCHLORIDE
     Indication: Product used for unknown indication
     Dosage: VERAPAMIL HCL 120 MG TAB ORAL QAM
     Route: 050
     Dates: start: 20220930
  13. BENAZEPRIL [Concomitant]
     Active Substance: BENAZEPRIL HYDROCHLORIDE
     Indication: Product used for unknown indication
     Route: 050
  14. SYNTHROID [Concomitant]
     Active Substance: LEVOTHYROXINE SODIUM
     Indication: Product used for unknown indication
     Dosage: SYNTHROID 88 MCG TAB ORAL DAILY THROID
     Route: 050
     Dates: start: 20220930
  15. VASOTEC [Concomitant]
     Active Substance: ENALAPRIL MALEATE
     Indication: Product used for unknown indication
     Dosage: 40 MG ORAL QAM
     Route: 050
     Dates: start: 20220930
  16. COMBIVENT [Concomitant]
     Active Substance: ALBUTEROL SULFATE\IPRATROPIUM BROMIDE
     Indication: Product used for unknown indication
     Dosage: METERED DOSE INHALER
     Route: 050
  17. LOVENOX [Concomitant]
     Active Substance: ENOXAPARIN SODIUM
     Indication: Product used for unknown indication
     Dosage: ENOXAPARIN 40 MG/0.4ML SYR 40 MG SUBCUTANEOUS OPTIONS QAM
     Route: 050
     Dates: start: 20220930
  18. VITAMIN C [Concomitant]
     Active Substance: ASCORBIC ACID
     Indication: Product used for unknown indication
     Dosage: QAM
     Route: 050
     Dates: start: 20220930
  19. ONDANSETRON HCL [Concomitant]
     Active Substance: ONDANSETRON HYDROCHLORIDE
     Indication: Product used for unknown indication
     Dosage: ONDANSETRON HCL 4MG/2ML INJECTION VIAL IV PUSH PRN Q6H
     Route: 050
     Dates: start: 20220929
  20. VITAMIN D3 [Concomitant]
     Active Substance: CHOLECALCIFEROL
     Indication: Product used for unknown indication
     Dosage: VITAMIN D2 CHOLECALCIFEROL 1000 IU TAB QAM
     Route: 050
     Dates: start: 20220930
  21. ZINC SULFATE [Concomitant]
     Active Substance: ZINC SULFATE
     Indication: Product used for unknown indication
     Dosage: ZINC SULFATE 220 MG CAP/TAB 220 MG ORAL QAM
     Route: 050
     Dates: start: 20220930
  22. TYLENOL [Concomitant]
     Active Substance: ACETAMINOPHEN
     Indication: Product used for unknown indication
     Dosage: ACETAMINOPHEN 325 MG TAB 650 MG ORAL PRN Q6H
     Route: 050
  23. JANUVIA [Concomitant]
     Active Substance: SITAGLIPTIN PHOSPHATE
     Indication: Product used for unknown indication
     Dosage: 100 MG ORAL EVERY MORNING
     Route: 050
  24. PEPCID [Concomitant]
     Active Substance: FAMOTIDINE
     Indication: Nausea
     Dosage: FAMOTIDINE 20 MG TAB ORAL QHS
     Route: 050
     Dates: start: 20220930
  25. PROTONIX [Concomitant]
     Active Substance: PANTOPRAZOLE SODIUM
     Indication: Nausea
     Dosage: PANTOPRAZOLE DR 40 MG ORAL QAM
     Route: 050
     Dates: start: 20220930
  26. TESSALON [Concomitant]
     Active Substance: BENZONATATE
     Indication: Cough
     Route: 050
     Dates: start: 20220930
  27. MAALOX ANTACID [Concomitant]
     Active Substance: ALUMINUM HYDROXIDE\DIMETHICONE\MAGNESIUM HYDROXIDE
     Indication: Nausea
     Dosage: 30 ML ORAL PRN Q4H
     Route: 050
     Dates: start: 20220930
  28. NARCAN [Concomitant]
     Active Substance: NALOXONE HYDROCHLORIDE
     Indication: Respiratory depression
     Route: 050

REACTIONS (3)
  - Metabolic encephalopathy [Unknown]
  - COVID-19 [Unknown]
  - Hyperglycaemia [Unknown]

NARRATIVE: CASE EVENT DATE: 20220923
